FAERS Safety Report 9374543 (Version 1)
Quarter: 2013Q2

REPORT INFORMATION
  Report Type: Spontaneous
  Country: US (occurrence: US)
  Receive Date: 20130628
  Receipt Date: 20130628
  Transmission Date: 20140414
  Serious: Yes (Hospitalization)
  Sender: FDA-Public Use
  Company Number: US-AMGEN-USASP2013044921

PATIENT
  Age: 60 Year
  Sex: Male

DRUGS (2)
  1. XGEVA [Suspect]
     Indication: METASTASES TO BONE
  2. OS-CAL [Concomitant]
     Route: 048

REACTIONS (3)
  - Lethargy [Unknown]
  - Muscular weakness [Unknown]
  - Fatigue [Unknown]
